FAERS Safety Report 9892261 (Version 1)
Quarter: 2014Q1

REPORT INFORMATION
  Report Type: Spontaneous
  Country: JP (occurrence: JP)
  Receive Date: 20140212
  Receipt Date: 20140212
  Transmission Date: 20141002
  Serious: Yes (Death)
  Sender: FDA-Public Use
  Company Number: JP-PFIZER INC-2014038383

PATIENT
  Age: 75 Year
  Sex: Male

DRUGS (1)
  1. AMLODIN [Suspect]
     Indication: HYPERTENSION
     Dosage: 5 MG, DAILY
     Route: 048

REACTIONS (1)
  - Brain stem infarction [Fatal]
